FAERS Safety Report 15897337 (Version 2)
Quarter: 2021Q4

REPORT INFORMATION
  Report Type: Spontaneous
  Country: JP (occurrence: JP)
  Receive Date: 20190131
  Receipt Date: 20211105
  Transmission Date: 20220303
  Serious: Yes (Death, Other)
  Sender: FDA-Public Use
  Company Number: JP-TAKEDA-2018TJP026990

PATIENT
  Age: 81 Year
  Sex: Male

DRUGS (8)
  1. ADCETRIS [Suspect]
     Active Substance: BRENTUXIMAB VEDOTIN
     Indication: Hodgkin^s disease
     Dosage: 60 MILLIGRAM, Q2WEEKS
     Route: 041
     Dates: start: 20181017
  2. ADCETRIS [Suspect]
     Active Substance: BRENTUXIMAB VEDOTIN
     Dosage: 30 MILLIGRAM, Q2WEEKS
     Route: 041
     Dates: start: 20181120
  3. ADRIACIN [Suspect]
     Active Substance: DOXORUBICIN HYDROCHLORIDE
     Indication: Hodgkin^s disease
     Dosage: 35 MILLIGRAM
     Route: 041
     Dates: start: 20181017
  4. ADRIACIN [Suspect]
     Active Substance: DOXORUBICIN HYDROCHLORIDE
     Dosage: 20 MILLIGRAM
     Route: 041
     Dates: start: 20181120
  5. VINBLASTINE SULFATE [Suspect]
     Active Substance: VINBLASTINE SULFATE
     Indication: Hodgkin^s disease
     Dosage: 8 MILLIGRAM
     Route: 041
     Dates: start: 20181017
  6. VINBLASTINE SULFATE [Suspect]
     Active Substance: VINBLASTINE SULFATE
     Dosage: 4 MILLIGRAM
     Route: 041
     Dates: start: 20181120
  7. DACARBAZINE [Suspect]
     Active Substance: DACARBAZINE
     Indication: Hodgkin^s disease
     Dosage: 360 MILLIGRAM
     Route: 041
     Dates: start: 20181017
  8. DACARBAZINE [Suspect]
     Active Substance: DACARBAZINE
     Dosage: 200 MILLIGRAM
     Route: 041
     Dates: start: 20181120

REACTIONS (3)
  - Renal impairment [Not Recovered/Not Resolved]
  - Hodgkin^s disease [Fatal]
  - Myelosuppression [Recovered/Resolved]
